FAERS Safety Report 13651970 (Version 5)
Quarter: 2017Q4

REPORT INFORMATION
  Report Type: Spontaneous
  Country: JP (occurrence: JP)
  Receive Date: 20170614
  Receipt Date: 20171030
  Transmission Date: 20180320
  Serious: Yes (Hospitalization, Other)
  Sender: FDA-Public Use
  Company Number: JP-BRISTOL-MYERS SQUIBB COMPANY-BMS-2017-049469

PATIENT
  Age: 77 Year
  Sex: Female
  Weight: 53 kg

DRUGS (6)
  1. ELIQUIS [Suspect]
     Active Substance: APIXABAN
     Indication: PRODUCT USED FOR UNKNOWN INDICATION
     Dosage: 2.5 MG, BID
     Route: 048
     Dates: start: 20170601, end: 20170608
  2. AMLODIPINE                         /00972402/ [Concomitant]
     Active Substance: AMLODIPINE BESYLATE
     Indication: HYPERTENSION
     Dosage: 2.5 MG, QD
     Route: 048
  3. ADETPHOS [Concomitant]
     Active Substance: ADENOSINE TRIPHOSPHATE
     Indication: PRODUCT USED FOR UNKNOWN INDICATION
     Dosage: 3 G, QD
     Route: 048
  4. ELIQUIS [Suspect]
     Active Substance: APIXABAN
     Indication: DEEP VEIN THROMBOSIS
     Dosage: 10 MG, BID
     Route: 048
     Dates: start: 20170408, end: 20170414
  5. OLMETEC [Concomitant]
     Active Substance: OLMESARTAN MEDOXOMIL
     Indication: HYPERTENSION
     Dosage: 10 MG, QD
     Route: 048
  6. ELIQUIS [Suspect]
     Active Substance: APIXABAN
     Indication: PRODUCT USED FOR UNKNOWN INDICATION
     Dosage: 5 MG, BID
     Route: 048
     Dates: start: 20170415, end: 20170531

REACTIONS (6)
  - Packed red blood cell transfusion [Unknown]
  - Blood albumin decreased [Recovering/Resolving]
  - Polyp [Unknown]
  - Anaemia [Recovering/Resolving]
  - Oedema peripheral [Unknown]
  - Blood creatinine abnormal [Unknown]

NARRATIVE: CASE EVENT DATE: 20170531
